FAERS Safety Report 7424880-0 (Version None)
Quarter: 2011Q2

REPORT INFORMATION
  Report Type: 
  Country: None (occurrence: None)
  Receive Date: 20110419
  Receipt Date: 20110413
  Transmission Date: 20111010
  Serious: Yes (Hospitalization, Other)
  Sender: FDA-Public Use
  Company Number: US-MERCK-0804USA03106

PATIENT
  Age: 58 Year
  Sex: Female

DRUGS (9)
  1. FOSAMAX [Suspect]
     Indication: OSTEOPOROSIS
     Route: 048
     Dates: start: 20020101, end: 20070801
  2. FOSAMAX [Suspect]
     Indication: OSTEOPENIA
     Route: 048
     Dates: start: 20020101, end: 20070801
  3. DIOVAN [Concomitant]
     Route: 065
  4. PIROXICAM [Concomitant]
     Route: 065
  5. FOSAMAX [Suspect]
     Route: 065
     Dates: start: 20060101, end: 20070101
  6. NEXIUM [Concomitant]
     Route: 065
  7. FOSAMAX [Suspect]
     Route: 065
     Dates: start: 20060101, end: 20070101
  8. PLAVIX [Concomitant]
     Route: 065
  9. LIPITOR [Concomitant]
     Route: 065

REACTIONS (5)
  - ARTHRALGIA [None]
  - PAIN [None]
  - PAIN IN EXTREMITY [None]
  - GAIT DISTURBANCE [None]
  - FEMUR FRACTURE [None]
